FAERS Safety Report 24051333 (Version 1)
Quarter: 2024Q3

REPORT INFORMATION
  Report Type: Spontaneous
  Country: DE (occurrence: DE)
  Receive Date: 20240704
  Receipt Date: 20240704
  Transmission Date: 20241016
  Serious: Yes (Hospitalization, Other)
  Sender: JUBILANT
  Company Number: None

PATIENT
  Age: 53 Year
  Sex: Male

DRUGS (2)
  1. ITRACONAZOLE [Suspect]
     Active Substance: ITRACONAZOLE
     Indication: Dermatitis
     Dosage: 100 MG, ONCE PER DAY (FOR 9 DAYS)
     Route: 065
  2. NYSTATIN;ZINC [Concomitant]
     Indication: Antifungal treatment
     Dosage: UNK,  UNK
     Route: 061

REACTIONS (1)
  - Symmetrical drug-related intertriginous and flexural exanthema [Recovered/Resolved]
